FAERS Safety Report 17215656 (Version 2)
Quarter: 2020Q1

REPORT INFORMATION
  Report Type: Report from Study
  Country: US (occurrence: US)
  Receive Date: 20191230
  Receipt Date: 20200325
  Transmission Date: 20200409
  Serious: No
  Sender: FDA-Public Use
  Company Number: US-INCYTE CORPORATION-2019IN011684

PATIENT

DRUGS (8)
  1. COUMADIN [Concomitant]
     Active Substance: WARFARIN SODIUM
     Indication: POLYCYTHAEMIA VERA
     Dosage: 4 MILLIGRAM, QD
     Route: 065
     Dates: start: 20130403
  2. JAKAFI [Suspect]
     Active Substance: RUXOLITINIB
     Indication: POLYCYTHAEMIA VERA
     Dosage: 10 MILLIGRAM, QD
     Route: 048
     Dates: start: 20150522
  3. VALTREX [Concomitant]
     Active Substance: VALACYCLOVIR HYDROCHLORIDE
     Indication: HERPES ZOSTER
     Dosage: 500 MILLIGRAM, BID
     Route: 065
     Dates: start: 20151228
  4. NEURONTIN [Concomitant]
     Active Substance: GABAPENTIN
     Indication: PAIN
     Dosage: 300 MILLIGRAM, QD
     Route: 065
     Dates: start: 20151120
  5. NORCO [Concomitant]
     Active Substance: ACETAMINOPHEN\HYDROCODONE BITARTRATE
     Indication: PAIN
     Dosage: 5/325 MG, Q8H PRN
     Route: 065
     Dates: start: 20151120
  6. PERIDEX [CHLORHEXIDINE GLUCONATE] [Concomitant]
     Indication: DENTAL DISORDER PROPHYLAXIS
     Dosage: UNK
     Route: 065
     Dates: start: 20161005
  7. RESTORIL [Concomitant]
     Active Substance: TEMAZEPAM
     Indication: SLEEP DISORDER
     Dosage: 15 MILLIGRAM, PRN
     Route: 065
     Dates: start: 20151105
  8. AVELOX [Concomitant]
     Active Substance: MOXIFLOXACIN HYDROCHLORIDE
     Indication: INFECTION
     Dosage: 400 MILLIGRAM, QD
     Route: 065
     Dates: start: 20150813

REACTIONS (4)
  - Thrombophlebitis superficial [Recovered/Resolved]
  - Pain in extremity [Recovered/Resolved]
  - Fall [Recovered/Resolved]
  - Arthralgia [Recovered/Resolved]

NARRATIVE: CASE EVENT DATE: 20161023
